FAERS Safety Report 16193338 (Version 1)
Quarter: 2019Q2

REPORT INFORMATION
  Report Type: Spontaneous
  Country: US (occurrence: US)
  Receive Date: 20190413
  Receipt Date: 20190413
  Transmission Date: 20190711
  Serious: No
  Sender: FDA-Public Use
  Company Number: US-009507513-1904USA004878

PATIENT
  Sex: Female

DRUGS (2)
  1. SINEMET [Suspect]
     Active Substance: CARBIDOPA\LEVODOPA
     Dosage: UNK UNK,4 TIMES A DAY(QID)
     Route: 048
  2. SINEMET [Suspect]
     Active Substance: CARBIDOPA\LEVODOPA
     Dosage: UNK UNK, 4 TIMES A DAY(QID)
     Route: 048

REACTIONS (3)
  - No adverse event [Unknown]
  - Product dose omission [Unknown]
  - Product supply issue [Unknown]
